FAERS Safety Report 6314206-8 (Version None)
Quarter: 2009Q3

REPORT INFORMATION
  Report Type: 
  Country: None (occurrence: None)
  Receive Date: 20090817
  Receipt Date: 20090803
  Transmission Date: 20100115
  Serious: Yes (Other)
  Sender: FDA-Public Use
  Company Number: 8049800

PATIENT
  Sex: Female

DRUGS (2)
  1. KEPPRA [Suspect]
     Dosage: 4500 MG 2/D PO
     Route: 048
  2. KEPPRA [Suspect]
     Dosage: 1000 MG 2/D

REACTIONS (6)
  - BRAIN OPERATION [None]
  - CONFUSIONAL STATE [None]
  - DRUG HYPERSENSITIVITY [None]
  - DRUG INEFFECTIVE [None]
  - KNEE OPERATION [None]
  - RASH [None]
